FAERS Safety Report 20613693 (Version 1)
Quarter: 2022Q1

REPORT INFORMATION
  Report Type: Spontaneous
  Country: US (occurrence: US)
  Receive Date: 20220319
  Receipt Date: 20220319
  Transmission Date: 20220423
  Serious: Yes (Death, Other)
  Sender: FDA-Public Use
  Company Number: US-ALVOGEN-2022-ALVOGEN-119116

PATIENT
  Age: 51 Year
  Sex: Female

DRUGS (6)
  1. GABAPENTIN [Suspect]
     Active Substance: GABAPENTIN
     Indication: Suicide attempt
  2. BACLOFEN [Suspect]
     Active Substance: BACLOFEN
     Indication: Suicide attempt
  3. OXYBUTYNIN [Suspect]
     Active Substance: OXYBUTYNIN
     Indication: Suicide attempt
  4. MELOXICAM [Suspect]
     Active Substance: MELOXICAM
     Indication: Suicide attempt
  5. SERTRALINE [Suspect]
     Active Substance: SERTRALINE HYDROCHLORIDE
     Indication: Suicide attempt
  6. ZYRTEC [Suspect]
     Active Substance: CETIRIZINE HYDROCHLORIDE
     Indication: Suicide attempt

REACTIONS (1)
  - Completed suicide [Fatal]
